FAERS Safety Report 24928916 (Version 1)
Quarter: 2025Q1

REPORT INFORMATION
  Report Type: Spontaneous
  Country: US (occurrence: US)
  Receive Date: 20250205
  Receipt Date: 20250205
  Transmission Date: 20250409
  Serious: No
  Sender: pharmaAND
  Company Number: US-Pharmaand-2024001083

PATIENT
  Sex: Female

DRUGS (6)
  1. RUBRACA [Suspect]
     Active Substance: RUCAPARIB CAMSYLATE
     Indication: Pancreatic carcinoma
     Dosage: 300MG TABLET TAKE BY MOUTH 2 TABLETS (600MG) EVERY 12 HOURS
     Route: 048
     Dates: start: 20240614
  2. OXYCODONE HYDROCHLORIDE [Concomitant]
     Active Substance: OXYCODONE HYDROCHLORIDE
  3. TAFINLAR [Concomitant]
     Active Substance: DABRAFENIB MESYLATE
  4. MEKINIST [Concomitant]
     Active Substance: TRAMETINIB DIMETHYL SULFOXIDE
  5. BENADRYL [Concomitant]
     Active Substance: DIPHENHYDRAMINE HYDROCHLORIDE
  6. PRILOSEC OTC [Concomitant]
     Active Substance: OMEPRAZOLE MAGNESIUM

REACTIONS (6)
  - Pain [Unknown]
  - Urinary tract infection [Not Recovered/Not Resolved]
  - Pyrexia [Not Recovered/Not Resolved]
  - Off label use [Recovered/Resolved]
  - Pancreatic carcinoma [Recovered/Resolved]
  - Incorrect dosage administered [Recovered/Resolved]
